FAERS Safety Report 13627921 (Version 1)
Quarter: 2017Q2

REPORT INFORMATION
  Report Type: Spontaneous
  Country: US (occurrence: US)
  Receive Date: 20170531
  Receipt Date: 20170531
  Transmission Date: 20170830
  Serious: Yes (Other)
  Sender: FDA-Public Use
  Company Number: US-ASTELLAS-1630388

PATIENT
  Sex: Male

DRUGS (2)
  1. AMOXICILLIN. [Concomitant]
     Active Substance: AMOXICILLIN
  2. TARCEVA [Suspect]
     Active Substance: ERLOTINIB HYDROCHLORIDE
     Indication: LUNG NEOPLASM MALIGNANT
     Route: 048
     Dates: start: 20150808

REACTIONS (7)
  - Pain [Unknown]
  - Weight decreased [Unknown]
  - Abdominal discomfort [Unknown]
  - Metastases to spine [Unknown]
  - Pruritus [Unknown]
  - Flatulence [Unknown]
  - Fatigue [Unknown]
